FAERS Safety Report 8473486-3 (Version None)
Quarter: 2012Q2

REPORT INFORMATION
  Report Type: 
  Country: None (occurrence: None)
  Receive Date: 20120622
  Receipt Date: 20120622
  Transmission Date: 20120825
  Serious: Yes (Other)
  Sender: FDA-Public Use
  Company Number: None

PATIENT
  Age: 44 Year
  Sex: Female
  Weight: 65.7716 kg

DRUGS (1)
  1. ESCITALOPRAM [Suspect]
     Indication: ANXIETY
     Dosage: 10 MG 1 PER DAY PO
     Route: 048
     Dates: start: 20120602, end: 20120604

REACTIONS (7)
  - HYPERTENSION [None]
  - HEART RATE INCREASED [None]
  - PRODUCT SUBSTITUTION ISSUE [None]
  - HYPERHIDROSIS [None]
  - CONFUSIONAL STATE [None]
  - TREMOR [None]
  - MUSCULOSKELETAL STIFFNESS [None]
